FAERS Safety Report 8908177 (Version 1)
Quarter: 2012Q4

REPORT INFORMATION
  Report Type: 
  Country: US (occurrence: US)
  Receive Date: 20121114
  Receipt Date: 20121114
  Transmission Date: 20130627
  Serious: No
  Sender: FDA-Public Use
  Company Number: US-PFIZER INC-2012284146

PATIENT
  Sex: Female

DRUGS (3)
  1. EFFEXOR [Suspect]
     Indication: HOT FLASHES
     Dosage: 75 mg, 2x/day
  2. EFFEXOR [Suspect]
     Indication: MOOD SWINGS
  3. EFFEXOR [Suspect]
     Indication: BIPOLAR DISORDER

REACTIONS (2)
  - Drug withdrawal syndrome [Unknown]
  - Off label use [Unknown]
